FAERS Safety Report 5385448-3 (Version None)
Quarter: 2007Q3

REPORT INFORMATION
  Report Type: 
  Country: None (occurrence: None)
  Receive Date: 20070709
  Receipt Date: 20070629
  Transmission Date: 20080115
  Serious: Yes (Hospitalization)
  Sender: FDA-Public Use
  Company Number: 163-21880-07031544

PATIENT
  Age: 69 Year
  Sex: Male

DRUGS (18)
  1. REVLIMID [Suspect]
     Indication: MYELODYSPLASTIC SYNDROME
     Dosage: SEE IMAGE
     Dates: start: 20060419, end: 20060501
  2. REVLIMID [Suspect]
     Indication: MYELODYSPLASTIC SYNDROME
     Dosage: SEE IMAGE
     Dates: start: 20060525, end: 20061101
  3. REVLIMID [Suspect]
     Indication: MYELODYSPLASTIC SYNDROME
     Dosage: SEE IMAGE
     Dates: start: 20070101, end: 20070301
  4. DARVOCET-N 100 [Concomitant]
  5. ACETAMINOPHEN W/ PROPOXYPHENE HCL [Concomitant]
  6. AMIODARONE HCL [Concomitant]
  7. AMOXICILLIN-CLAVULANATE (AMOXICILLIN W/CLAVULANATE POTASSIUM) [Concomitant]
  8. ASPIRIN [Concomitant]
  9. ATORVASTATIN CALCIUM [Concomitant]
  10. BALSAM-TRYPSIN-CASTOR OIL (GRANULEX) [Concomitant]
  11. DIPHENOXYLATE-ATROPINE SULFATE (LOMOTIL) [Concomitant]
  12. DOCUSATE (DOCUSATE) [Concomitant]
  13. FINASTERIDE [Concomitant]
  14. INSULIN GLARGINE (INSULIN GLARGINE) [Concomitant]
  15. LACTOBACILLUS (LACTOBACILLUS ACIDOPHILUS) [Concomitant]
  16. METOPROLOL TARTRATE [Concomitant]
  17. MIRTAZAPINE [Concomitant]
  18. PROPOXYPHENE NAPSYLATE (DEXTROPROPOXYPHENE NAPSILATE) [Concomitant]

REACTIONS (11)
  - ABSCESS NECK [None]
  - ANAEMIA [None]
  - CULTURE POSITIVE [None]
  - DEHYDRATION [None]
  - ENTEROCUTANEOUS FISTULA [None]
  - HYPOTENSION [None]
  - INTESTINAL STENOSIS [None]
  - LEUKOPENIA [None]
  - RENAL FAILURE ACUTE [None]
  - SEPSIS [None]
  - THROMBOCYTHAEMIA [None]
